FAERS Safety Report 4308690-9 (Version None)
Quarter: 2004Q1

REPORT INFORMATION
  Report Type: 
  Country: None (occurrence: None)
  Receive Date: 20040226
  Receipt Date: 20040211
  Transmission Date: 20041129
  Serious: Yes (Hospitalization)
  Sender: FDA-Public Use
  Company Number: 229153

PATIENT
  Age: 89 Year
  Sex: Female

DRUGS (9)
  1. INSULATARD(INSULIN HUMAN) SUSPENSION FOR INJECTION INSULATARD(INSULIN [Suspect]
     Indication: INSULIN-REQUIRING TYPE II DIABETES MELLITUS
     Dosage: 30 IU, QD, SUBCUTANEOUS
     Route: 058
     Dates: start: 20030101
  2. GLUCOPHAGE ^HOECHST^ [Concomitant]
  3. ACEBUTOLOL [Concomitant]
  4. PROZAC [Concomitant]
  5. DESLORATADINE (DESLORATADINE) [Concomitant]
  6. KARDEGIC (ACETYLSALICYLATE LYSINE) [Concomitant]
  7. MODOPAR (BENSERAZIDE HYDROCHLORIDE) [Concomitant]
  8. CORVASAL (MOLSIDOMINE) [Concomitant]
  9. LAMALINE (BELLADONNA EXTRACT, CAFFEINE, OPIUM TINCTURE, PARACETAMOL) [Concomitant]

REACTIONS (4)
  - ASTHENIA [None]
  - DIARRHOEA [None]
  - DRUG INTERACTION [None]
  - HYPOGLYCAEMIA [None]
